FAERS Safety Report 4476403-6 (Version None)
Quarter: 2004Q4

REPORT INFORMATION
  Report Type: 
  Country: None (occurrence: None)
  Receive Date: 20041016
  Receipt Date: 20041008
  Transmission Date: 20050328
  Serious: Yes (Life-Threatening, Hospitalization, Disabling)
  Sender: FDA-Public Use
  Company Number: US-MERCK-0410USA01391

PATIENT
  Age: 68 Year
  Sex: Female

DRUGS (7)
  1. OSTEO-BI-FLEX [Concomitant]
     Route: 065
  2. OS-CAL [Concomitant]
     Route: 065
  3. ZYRTEC [Concomitant]
     Route: 065
  4. NEXIUM [Concomitant]
     Route: 065
  5. VIOXX [Suspect]
     Indication: ARTHRITIS
     Route: 048
     Dates: start: 20010101, end: 20041006
  6. THYROID [Concomitant]
     Route: 065
  7. VITAMINS (UNSPECIFIED) [Concomitant]
     Route: 065

REACTIONS (12)
  - ACTIVITIES OF DAILY LIVING IMPAIRED [None]
  - CHEST DISCOMFORT [None]
  - COUGH [None]
  - CYANOSIS [None]
  - DYSPNOEA [None]
  - HEADACHE [None]
  - PAIN [None]
  - PAIN IN EXTREMITY [None]
  - PERIPHERAL COLDNESS [None]
  - SLEEP DISORDER [None]
  - THYROID MASS [None]
  - TINNITUS [None]
